FAERS Safety Report 5155435-9 (Version None)
Quarter: 2006Q4

REPORT INFORMATION
  Report Type: 
  Country: None (occurrence: None)
  Receive Date: 20061114
  Receipt Date: 20061101
  Transmission Date: 20070319
  Serious: Yes (Other)
  Sender: FDA-Public Use
  Company Number: 2006136430

PATIENT
  Age: 53 Year
  Sex: Male
  Weight: 90.7194 kg

DRUGS (6)
  1. LYRICA [Suspect]
     Indication: NEUROPATHY PERIPHERAL
     Dosage: 50 MG (50 MG, 1 IN 1 D)
     Dates: start: 20060611, end: 20060601
  2. HYDROMORPHONE HCL [Suspect]
     Indication: NEUROPATHY PERIPHERAL
  3. CLONIDINE [Suspect]
     Indication: NEUROPATHY PERIPHERAL
  4. PAXIL [Concomitant]
  5. PROPAFENONE HCL [Concomitant]
  6. PERCOCET [Concomitant]

REACTIONS (6)
  - ANXIETY [None]
  - DIZZINESS [None]
  - DRUG INTERACTION [None]
  - FEELING ABNORMAL [None]
  - PSYCHOMOTOR HYPERACTIVITY [None]
  - THINKING ABNORMAL [None]
